FAERS Safety Report 5515036-7 (Version None)
Quarter: 2007Q4

REPORT INFORMATION
  Report Type: 
  Country: None (occurrence: None)
  Receive Date: 20071113
  Receipt Date: 20061127
  Transmission Date: 20080405
  Serious: No
  Sender: FDA-Public Use
  Company Number: A0628685A

PATIENT
  Age: 82 Year
  Sex: Female

DRUGS (5)
  1. COREG [Suspect]
     Dosage: 25MG TWICE PER DAY
     Route: 048
     Dates: start: 20060401
  2. LASIX [Concomitant]
  3. ALDACTONE [Concomitant]
  4. PRILOSEC [Concomitant]
  5. PRAVASTATIN [Concomitant]

REACTIONS (4)
  - MOBILITY DECREASED [None]
  - MUSCULAR WEAKNESS [None]
  - PRURITUS [None]
  - RASH GENERALISED [None]
